FAERS Safety Report 7800790-1 (Version None)
Quarter: 2011Q4

REPORT INFORMATION
  Report Type: 
  Country: None (occurrence: None)
  Receive Date: 20111006
  Receipt Date: 20110929
  Transmission Date: 20120403
  Serious: Yes (Hospitalization)
  Sender: FDA-Public Use
  Company Number: JP-B.I. PHARMACEUTICALS,INC./RIDGEFIELD-2011-BP-21183NB

PATIENT
  Sex: Female
  Weight: 48.5 kg

DRUGS (5)
  1. DIOVAN [Concomitant]
     Indication: HYPERTENSION
     Dosage: 80 NR
     Route: 048
     Dates: start: 20090601
  2. VERAPAMIL HCL [Concomitant]
     Indication: ARRHYTHMIA
     Dosage: 80 NR
     Route: 048
     Dates: start: 20090601
  3. BISOPROLOL FUMARATE [Concomitant]
     Indication: ARRHYTHMIA
     Dosage: 2.5 NR
     Route: 048
     Dates: start: 20090601
  4. LASIX [Concomitant]
     Indication: HYPERTENSION
     Dosage: 10 NR
     Route: 048
     Dates: start: 20090601
  5. PRADAXA [Suspect]
     Indication: ATRIAL FIBRILLATION
     Dosage: 220 MG
     Route: 048
     Dates: start: 20110418, end: 20110630

REACTIONS (1)
  - INTERNATIONAL NORMALISED RATIO INCREASED [None]
